FAERS Safety Report 9173237 (Version 1)
Quarter: 2013Q1

REPORT INFORMATION
  Report Type: Report from Study
  Country: US (occurrence: US)
  Receive Date: 20130320
  Receipt Date: 20130320
  Transmission Date: 20140127
  Serious: Yes (Death, Hospitalization, Other)
  Sender: FDA-Public Use
  Company Number: US-JNJFOC-20090102013

PATIENT
  Age: 68 Year
  Sex: Female
  Weight: 59 kg

DRUGS (37)
  1. CISAPRIDE [Suspect]
     Indication: GASTROOESOPHAGEAL REFLUX DISEASE
     Route: 048
     Dates: end: 20090712
  2. CISAPRIDE [Suspect]
     Indication: GASTROOESOPHAGEAL REFLUX DISEASE
     Route: 048
     Dates: start: 20010504
  3. CISAPRIDE [Suspect]
     Indication: GASTROOESOPHAGEAL REFLUX DISEASE
     Dosage: SWITCHED TO PROTOCOL CIS-USA-IND
     Route: 048
     Dates: start: 20090723, end: 20110430
  4. TRIAMTERENE [Concomitant]
     Dosage: 75-50 MG
     Route: 048
  5. POTASSIUM [Concomitant]
     Route: 065
  6. PANCREASE MT-10 [Concomitant]
     Dosage: 30-10-30
     Route: 048
  7. PROCARDIA [Concomitant]
     Route: 048
  8. MAXZIDE [Concomitant]
     Route: 065
  9. LOPID [Concomitant]
     Route: 065
  10. VALIUM [Concomitant]
     Route: 065
  11. HALCION [Concomitant]
     Route: 065
  12. TUMS [Concomitant]
     Route: 065
  13. HYOSCYAMINE [Concomitant]
     Route: 065
  14. VASOTEC [Concomitant]
     Route: 048
  15. DECONAMINE SR [Concomitant]
     Route: 065
  16. ASA [Concomitant]
     Route: 048
  17. TOPIRAMATE [Concomitant]
     Route: 065
  18. RIZATRIPTAN [Concomitant]
     Route: 065
  19. FROVATRIPTAN [Concomitant]
     Route: 065
  20. SYNTHROID [Concomitant]
     Indication: HYPOTHYROIDISM
     Route: 048
     Dates: start: 20030107
  21. ALLEGRA-D [Concomitant]
     Indication: RHINITIS ALLERGIC
     Dosage: 120-60 MG
     Route: 048
     Dates: start: 20030501
  22. K-DUR [Concomitant]
     Dosage: 120-60 MG
     Route: 048
  23. MECLIZINE [Concomitant]
     Dosage: 120-60 MG
     Route: 048
  24. SENNA [Concomitant]
     Indication: CONSTIPATION
     Dosage: 120-60 MG
     Route: 048
  25. LIDODERM [Concomitant]
     Indication: PAIN
     Dosage: 120-60 MG
     Route: 062
  26. DEXAMETHASONE [Concomitant]
     Dosage: 120-60 MG
     Route: 048
  27. LORATADIN [Concomitant]
     Indication: RHINITIS ALLERGIC
     Dosage: 120-60 MG
     Route: 048
  28. GEMFIBROZIL [Concomitant]
     Dosage: 120-60 MG
     Route: 048
  29. NEURONTIN [Concomitant]
     Dosage: 120-60 MG
     Route: 048
  30. ENALAPRIL MALEATE [Concomitant]
     Dosage: 120-60 MG
     Route: 048
  31. ZYRTEC [Concomitant]
     Dosage: 120-60 MG
     Route: 048
  32. CELEBREX [Concomitant]
     Dosage: 120-60 MG
     Route: 048
  33. HYDROCODONE [Concomitant]
     Dosage: 5 MG TO 325 MG
     Route: 048
  34. DIAZEPAM [Concomitant]
     Dosage: 5 MG TO 325 MG
     Route: 048
  35. ECOTRIN [Concomitant]
     Dosage: 5 MG TO 325 MG
     Route: 048
  36. TOPAMAX [Concomitant]
     Dosage: 5 MG TO 325 MG
     Route: 048
  37. SYNTHROID [Concomitant]
     Dosage: 5 MG TO 325 MG
     Route: 048

REACTIONS (2)
  - Metastases to bone [Fatal]
  - Non-small cell lung cancer stage IV [Fatal]
